FAERS Safety Report 24043601 (Version 2)
Quarter: 2024Q4

REPORT INFORMATION
  Report Type: Report from Study
  Country: CA (occurrence: CA)
  Receive Date: 20240703
  Receipt Date: 20241113
  Transmission Date: 20250115
  Serious: Yes (Death, Other)
  Sender: Alvotech
  Company Number: CA-JAMP PHARMA CORPORATION-2024-JAM-CA-00196

PATIENT
  Age: 39 Year
  Sex: Male

DRUGS (3)
  1. SIMLANDI [Suspect]
     Active Substance: ADALIMUMAB-RYVK
     Indication: Psoriasis
     Dosage: 80 MILLIGRAM, WEEK 2 (ALTERNATING WITH 40 MG)
     Route: 058
  2. SIMLANDI [Suspect]
     Active Substance: ADALIMUMAB-RYVK
     Indication: Psoriasis
     Dosage: 40 MILLIGRAM, WEEK 1 (ALTERNATING WITH 80 MG)
     Route: 058
  3. SIMLANDI [Suspect]
     Active Substance: ADALIMUMAB-RYVK
     Indication: Psoriasis
     Dosage: 40 MILLIGRAM, WEEKLY
     Route: 058
     Dates: start: 20231225

REACTIONS (4)
  - Death [Fatal]
  - Psoriatic arthropathy [Unknown]
  - Off label use [Unknown]
  - Inappropriate schedule of product administration [Unknown]
